FAERS Safety Report 10724757 (Version 2)
Quarter: 2015Q2

REPORT INFORMATION
  Report Type: Report from Study
  Country: AU (occurrence: AU)
  Receive Date: 20150120
  Receipt Date: 20150403
  Transmission Date: 20150821
  Serious: Yes (Hospitalization)
  Sender: FDA-Public Use
  Company Number: AU-BRISTOL-MYERS SQUIBB COMPANY-21586144

PATIENT
  Age: 75 Year
  Sex: Female
  Weight: 70 kg

DRUGS (39)
  1. DIGOXIN. [Concomitant]
     Active Substance: DIGOXIN
     Route: 065
  2. SENNA [Concomitant]
     Active Substance: SENNA LEAF\SENNOSIDES\SENNOSIDES A AND B
     Route: 065
  3. HYDROCORTISONE. [Concomitant]
     Active Substance: HYDROCORTISONE
     Dates: start: 20141030, end: 20141109
  4. NIVOLUMAB [Suspect]
     Active Substance: NIVOLUMAB
     Indication: METASTATIC MALIGNANT MELANOMA
     Dosage: 1DF= 1/3 MG/KG
     Route: 042
     Dates: start: 20140114
  5. PANADOL                            /00020001/ [Concomitant]
     Route: 065
  6. PANADOL                            /00020001/ [Concomitant]
     Dates: start: 20140714
  7. ACTILAX                            /00163401/ [Concomitant]
     Active Substance: LACTULOSE
     Route: 065
  8. ACTILAX                            /00163401/ [Concomitant]
     Active Substance: LACTULOSE
     Dates: start: 2013
  9. MOCLOBEMIDE [Concomitant]
     Active Substance: MOCLOBEMIDE
     Route: 065
  10. WARFARIN [Concomitant]
     Active Substance: WARFARIN
     Route: 065
  11. STEMZINE [Concomitant]
     Dates: start: 20131126
  12. HYDROCORTISONE. [Concomitant]
     Active Substance: HYDROCORTISONE
     Route: 065
  13. FESS [Concomitant]
     Dates: start: 2013
  14. SORBOLENE [Concomitant]
     Dates: start: 20140720
  15. SYSTANE (HYPROMELLOSE 2910 (4000 MPA.S)) [Concomitant]
     Active Substance: HYPROMELLOSE 2910 (4000 MPA.S)
     Dates: start: 2010
  16. SODIUM CHLORIDE. [Concomitant]
     Active Substance: SODIUM CHLORIDE
     Route: 065
  17. SOTALOL. [Concomitant]
     Active Substance: SOTALOL
     Route: 065
  18. AMIRA [Concomitant]
     Dates: start: 1998
  19. STEMZINE [Concomitant]
     Route: 065
  20. SOMAC [Concomitant]
     Active Substance: PANTOPRAZOLE SODIUM
     Route: 065
  21. SOMAC [Concomitant]
     Active Substance: PANTOPRAZOLE SODIUM
     Dates: start: 20141007
  22. LASIX [Concomitant]
     Active Substance: FUROSEMIDE
     Dates: start: 20141112, end: 20141112
  23. METOCLOPRAMIDE. [Concomitant]
     Active Substance: METOCLOPRAMIDE
     Dates: start: 20141111, end: 20141111
  24. PREDNISONE. [Concomitant]
     Active Substance: PREDNISONE
     Dates: start: 20141113
  25. PANADOL                            /00020001/ [Concomitant]
     Dates: start: 2001
  26. SOTALOL. [Concomitant]
     Active Substance: SOTALOL
     Dates: start: 2005
  27. HYDROCORTISONE. [Concomitant]
     Active Substance: HYDROCORTISONE
     Dates: start: 20141011, end: 20141029
  28. FLEET ENEMA ADULTO [Concomitant]
     Dates: start: 20141112, end: 20141112
  29. PROTHROMBINEX [Concomitant]
     Active Substance: COAGULATION FACTOR IX HUMAN\COAGULATION FACTOR VII HUMAN\COAGULATION FACTOR X HUMAN\PROTHROMBIN
     Dates: start: 20141112, end: 20141112
  30. STOPITCH [Concomitant]
     Dates: start: 20140411
  31. URAL                               /00049401/ [Concomitant]
     Dates: start: 20141109, end: 20141109
  32. PANADOL                            /00020001/ [Concomitant]
     Dates: start: 20140422
  33. BETAMETHASONE [Concomitant]
     Active Substance: BETAMETHASONE
     Route: 065
  34. CIPROFLOXACIN. [Concomitant]
     Active Substance: CIPROFLOXACIN
     Dates: start: 20141110, end: 20141112
  35. URODERM [Concomitant]
     Dates: start: 20140329
  36. DIGOXIN. [Concomitant]
     Active Substance: DIGOXIN
     Dates: start: 2001
  37. WARFARIN [Concomitant]
     Active Substance: WARFARIN
     Dates: start: 2002
  38. PREDNISONE. [Concomitant]
     Active Substance: PREDNISONE
     Dates: start: 20141108, end: 20141111
  39. METRONIDAZOLE. [Concomitant]
     Active Substance: METRONIDAZOLE
     Dates: start: 20141110, end: 20141112

REACTIONS (1)
  - Colitis [Recovered/Resolved]

NARRATIVE: CASE EVENT DATE: 20141108
